FAERS Safety Report 21124974 (Version 2)
Quarter: 2022Q3

REPORT INFORMATION
  Report Type: Spontaneous
  Country: US (occurrence: US)
  Receive Date: 20220725
  Receipt Date: 20220725
  Transmission Date: 20221027
  Serious: Yes (Life-Threatening, Hospitalization, Other)
  Sender: FDA-Public Use
  Company Number: US-PFIZER INC-PV202200022335

PATIENT
  Age: 19 Year
  Sex: Female

DRUGS (2)
  1. BUPIVACAINE HYDROCHLORIDE [Suspect]
     Active Substance: BUPIVACAINE HYDROCHLORIDE
     Indication: Spinal anaesthesia
     Dosage: 1.6 ML
  2. OXYTOCIN [Suspect]
     Active Substance: OXYTOCIN
     Indication: Spinal anaesthesia
     Dosage: UNK

REACTIONS (1)
  - Distributive shock [Unknown]
